FAERS Safety Report 18325241 (Version 1)
Quarter: 2020Q3

REPORT INFORMATION
  Report Type: Other
  Country: CA (occurrence: CA)
  Receive Date: 20200928
  Receipt Date: 20200928
  Transmission Date: 20201103
  Serious: Yes (Other)
  Sender: FDA-Public Use
  Company Number: CA-INTERCEPT-PM2020001942

PATIENT
  Sex: Female

DRUGS (3)
  1. OCALIVA [Suspect]
     Active Substance: OBETICHOLIC ACID
     Dosage: 10 MG, QD
     Route: 048
     Dates: start: 202008
  2. OCALIVA [Suspect]
     Active Substance: OBETICHOLIC ACID
     Indication: PRIMARY BILIARY CHOLANGITIS
     Dosage: 5 MG, QD
     Route: 048
     Dates: start: 20191014
  3. URSO [Concomitant]
     Active Substance: URSODIOL
     Dosage: 1000 MG, QAM
     Route: 048

REACTIONS (1)
  - Autoimmune hepatitis [Unknown]

NARRATIVE: CASE EVENT DATE: 2020
